FAERS Safety Report 11776435 (Version 2)
Quarter: 2015Q4

REPORT INFORMATION
  Report Type: Spontaneous
  Country: DE (occurrence: DE)
  Receive Date: 20151125
  Receipt Date: 20151207
  Transmission Date: 20160304
  Serious: Yes (Hospitalization)
  Sender: FDA-Public Use
  Company Number: DE-ROCHE-1666704

PATIENT
  Age: 46 Year
  Sex: Female
  Weight: 71 kg

DRUGS (10)
  1. VALSARTAN. [Concomitant]
     Active Substance: VALSARTAN
     Indication: BLOOD PRESSURE INCREASED
     Dosage: INTAKE FOR YEARS
     Route: 048
  2. TOREM [Concomitant]
     Active Substance: TORSEMIDE
     Route: 065
  3. AMLODIPIN [Concomitant]
     Active Substance: AMLODIPINE BESYLATE
     Indication: BLOOD PRESSURE INCREASED
     Dosage: INTAKE FOR YEARS
     Route: 048
  4. CYNT (GERMANY) [Concomitant]
     Route: 065
  5. AVASTIN [Suspect]
     Active Substance: BEVACIZUMAB
     Indication: MACULAR DEGENERATION
     Route: 050
     Dates: start: 20150201, end: 20151112
  6. XELEVIA [Concomitant]
     Active Substance: SITAGLIPTIN PHOSPHATE
     Indication: DIABETES MELLITUS
     Dosage: INTAKE FOR YEARS
     Route: 048
  7. CARVEDILOL. [Concomitant]
     Active Substance: CARVEDILOL
     Indication: DIABETES MELLITUS
     Route: 048
  8. AQUAPHOR [Concomitant]
     Active Substance: PETROLATUM
     Indication: DIABETES MELLITUS
     Dosage: INTAKE FOR YEARS
     Route: 048
  9. SPIRONOLACTON [Concomitant]
     Active Substance: SPIRONOLACTONE
     Route: 065
  10. LANTUS [Concomitant]
     Active Substance: INSULIN GLARGINE

REACTIONS (5)
  - Normochromic normocytic anaemia [Unknown]
  - Off label use [Unknown]
  - Cardiac failure [Recovered/Resolved]
  - Pericardial effusion [Recovered/Resolved]
  - Pleural effusion [Recovered/Resolved]

NARRATIVE: CASE EVENT DATE: 20151016
